FAERS Safety Report 9330553 (Version 1)
Quarter: 2013Q2

REPORT INFORMATION
  Report Type: Spontaneous
  Country: US (occurrence: None)
  Receive Date: 20130604
  Receipt Date: 20130604
  Transmission Date: 20140414
  Serious: No
  Sender: FDA-Public Use
  Company Number: None

PATIENT
  Age: 78 Year
  Sex: Male

DRUGS (4)
  1. CARBOPLATIN [Suspect]
     Indication: LUNG NEOPLASM MALIGNANT
     Route: 042
     Dates: start: 20120914
  2. ALOXI [Concomitant]
  3. DECADRON [Concomitant]
  4. SOLUMEDROL [Concomitant]

REACTIONS (3)
  - Pneumonia [None]
  - Cough [None]
  - Dyspnoea [None]
